FAERS Safety Report 12130405 (Version 1)
Quarter: 2016Q1

REPORT INFORMATION
  Report Type: Spontaneous
  Country: US (occurrence: None)
  Receive Date: 20160229
  Receipt Date: 20160229
  Transmission Date: 20160526
  Serious: No
  Sender: FDA-Public Use
  Company Number: None

PATIENT
  Age: 23 Year
  Sex: Female

DRUGS (4)
  1. BIRTH CONTROL [Concomitant]
     Active Substance: UNSPECIFIED INGREDIENT
  2. PAROXETINE APOTEX [Suspect]
     Active Substance: PAROXETINE HYDROCHLORIDE
     Indication: ANXIETY
     Dosage: 40 MG 90 PILLS ONCE DAILY BY MOUTH
     Route: 048
     Dates: start: 2011, end: 201601
  3. PAROXETINE APOTEX [Suspect]
     Active Substance: PAROXETINE HYDROCHLORIDE
     Indication: DEPRESSION
     Dosage: 40 MG 90 PILLS ONCE DAILY BY MOUTH
     Route: 048
     Dates: start: 2011, end: 201601
  4. XANAX [Concomitant]
     Active Substance: ALPRAZOLAM

REACTIONS (6)
  - Rash erythematous [None]
  - Night sweats [None]
  - Vertigo positional [None]
  - Rash [None]
  - Rash pruritic [None]
  - Nightmare [None]

NARRATIVE: CASE EVENT DATE: 201512
